FAERS Safety Report 11766959 (Version 3)
Quarter: 2015Q4

REPORT INFORMATION
  Report Type: Report from Study
  Country: DE (occurrence: DE)
  Receive Date: 20151123
  Receipt Date: 20151214
  Transmission Date: 20160304
  Serious: Yes (Death, Hospitalization)
  Sender: FDA-Public Use
  Company Number: PHHY2015DE152450

PATIENT
  Age: 81 Year
  Sex: Female
  Weight: 64 kg

DRUGS (4)
  1. FLUCONAZOLE. [Concomitant]
     Active Substance: FLUCONAZOLE
     Indication: PNEUMONIA
     Dosage: UNK
     Route: 065
     Dates: start: 20110713
  2. TOREM [Concomitant]
     Active Substance: TORSEMIDE
     Indication: PRODUCT USED FOR UNKNOWN INDICATION
     Dosage: 10 MG, QD
     Route: 065
     Dates: start: 20110713, end: 20110801
  3. ICL670A [Suspect]
     Active Substance: DEFERASIROX
     Indication: MYELODYSPLASTIC SYNDROME
     Dosage: 1000 MG, QD
     Route: 065
     Dates: start: 20101115
  4. PANTOZOL [Concomitant]
     Active Substance: PANTOPRAZOLE SODIUM
     Indication: PRODUCT USED FOR UNKNOWN INDICATION
     Dosage: 40 MG, QD
     Route: 065
     Dates: start: 20110713, end: 20110801

REACTIONS (8)
  - Thyroiditis [Not Recovered/Not Resolved]
  - Ovarian mass [Not Recovered/Not Resolved]
  - Febrile neutropenia [Recovered/Resolved]
  - Cerebral haemorrhage [Recovered/Resolved]
  - Myelodysplastic syndrome [Fatal]
  - Pulmonary mass [Not Recovered/Not Resolved]
  - General physical condition abnormal [Fatal]
  - Pneumonia [Recovered/Resolved]

NARRATIVE: CASE EVENT DATE: 20110713
